FAERS Safety Report 26153328 (Version 2)
Quarter: 2025Q4

REPORT INFORMATION
  Report Type: Report from Study
  Country: CN (occurrence: CN)
  Receive Date: 20251214
  Receipt Date: 20251216
  Transmission Date: 20260118
  Serious: Yes (Hospitalization, Other)
  Sender: ABBVIE
  Company Number: CN-ABBVIE-6586465

PATIENT
  Age: 62 Year
  Sex: Male
  Weight: 55 kg

DRUGS (10)
  1. OZURDEX [Suspect]
     Active Substance: DEXAMETHASONE
     Indication: Diabetic retinal oedema
     Dosage: TIME INTERVAL: AS NECESSARY: 700 MICROGRAM
     Route: 050
     Dates: start: 20250612
  2. CONBERCEPT [Concomitant]
     Active Substance: CONBERCEPT
     Indication: Diabetic retinal oedema
     Dosage: CONBERCEPT OPHTHALMIC INJECTION
     Route: 031
     Dates: start: 20250707, end: 20250707
  3. CONBERCEPT [Concomitant]
     Active Substance: CONBERCEPT
     Indication: Diabetic retinal oedema
     Dosage: CONBERCEPT OPHTHALMIC INJECTION
     Route: 031
     Dates: start: 20251210, end: 20251210
  4. CALCIUM DOBESILATE [Concomitant]
     Active Substance: CALCIUM DOBESILATE
     Indication: Type 2 diabetes mellitus
     Dosage: TIME INTERVAL: 0.33333333 DAYS: CALCIUM DOBESILATE CAPSULES
     Route: 048
     Dates: start: 2024
  5. CLOPIDOGREL BISULFATE [Concomitant]
     Active Substance: CLOPIDOGREL BISULFATE
     Indication: Thrombosis prophylaxis
     Route: 048
     Dates: start: 202510
  6. BERAPROST SODIUM [Concomitant]
     Active Substance: BERAPROST SODIUM
     Indication: Renal failure
     Dosage: BERAPROST SODIUM TABLETS
     Route: 048
     Dates: start: 2023
  7. LOSARTAN POTASSIUM [Concomitant]
     Active Substance: LOSARTAN POTASSIUM
     Indication: Hypertension
     Dosage: LOSARTAN POTASSIUM TABLETS
     Route: 048
     Dates: start: 2016
  8. ATORVASTATIN [Concomitant]
     Active Substance: ATORVASTATIN
     Indication: Hyperlipidaemia
     Dosage: CALCIUM TABLETS
     Route: 048
     Dates: start: 202510
  9. DAPAGLIFLOZIN [Concomitant]
     Active Substance: DAPAGLIFLOZIN
     Indication: Type 2 diabetes mellitus
     Dosage: DAPAGLIFLOZIN TABLETS
     Route: 048
     Dates: start: 2024
  10. PANTOPRAZOLE SODIUM [Concomitant]
     Active Substance: PANTOPRAZOLE SODIUM
     Indication: Gastrointestinal disorder prophylaxis
     Dosage: ENTERIC-COATED TABLETS
     Route: 048
     Dates: start: 202510, end: 20251022

REACTIONS (9)
  - Diabetes mellitus [Recovered/Resolved]
  - Lacunar infarction [Not Recovered/Not Resolved]
  - Nephrolithiasis [Not Recovered/Not Resolved]
  - Thyroid mass [Not Recovered/Not Resolved]
  - Hepatic steatosis [Not Recovered/Not Resolved]
  - Osteoporosis [Not Recovered/Not Resolved]
  - Arteriosclerosis [Not Recovered/Not Resolved]
  - Diabetic vascular disorder [Not Recovered/Not Resolved]
  - Pulmonary mass [Not Recovered/Not Resolved]

NARRATIVE: CASE EVENT DATE: 20251009
